FAERS Safety Report 8832689 (Version 1)
Quarter: 2012Q4

REPORT INFORMATION
  Report Type: 
  Country: GB (occurrence: GB)
  Receive Date: 20121010
  Receipt Date: 20121010
  Transmission Date: 20130627
  Serious: Yes (Other)
  Sender: FDA-Public Use
  Company Number: GB-009507513-1210GBR002731

PATIENT
  Age: 22 Year
  Sex: Male
  Weight: 76 kg

DRUGS (4)
  1. PROPECIA 1MG FILM-COATED TABLET [Suspect]
     Indication: ALOPECIA
     Dosage: 1 mg, qd
     Route: 048
     Dates: start: 20120123, end: 20120915
  2. ARIMIDEX [Concomitant]
  3. TAMOXIFEN CITRATE [Concomitant]
  4. TESTOSTERONE ENANTHATE [Concomitant]

REACTIONS (5)
  - Anhedonia [Unknown]
  - Anxiety [Unknown]
  - Apathy [Unknown]
  - Emotional disorder [Unknown]
  - Loss of libido [Unknown]
